FAERS Safety Report 14138645 (Version 2)
Quarter: 2017Q4

REPORT INFORMATION
  Report Type: Spontaneous
  Country: US (occurrence: US)
  Receive Date: 20171027
  Receipt Date: 20171201
  Transmission Date: 20180321
  Serious: Yes (Other)
  Sender: FDA-Public Use
  Company Number: US-BAYER-2017-176946

PATIENT
  Age: 71 Year
  Sex: Male
  Weight: 89 kg

DRUGS (3)
  1. ALEVE TENS DEVICE DIRECT THERAPY UNIT [Suspect]
     Active Substance: DEVICE
     Indication: BACK PAIN
     Dosage: 5-6 TIMES A WEEK
     Dates: start: 20170820, end: 20170912
  2. BAYER ASPIRIN 500 MG [Suspect]
     Active Substance: ASPIRIN
     Indication: BACK PAIN
     Dosage: TAKE 2 TABLETS TWICE A DAY AND TAKE FOR A WEEK THEN TAKE A WEEK OFF
     Route: 048
     Dates: start: 2012, end: 2012
  3. ALEVE [Suspect]
     Active Substance: NAPROXEN SODIUM
     Indication: PAIN
     Dosage: 1 DF, TID
     Route: 048
     Dates: start: 2013, end: 2013

REACTIONS (6)
  - Medical device discomfort [Unknown]
  - Epistaxis [Recovered/Resolved]
  - Haemorrhagic diathesis [Unknown]
  - Device ineffective [Unknown]
  - Drug effect incomplete [Unknown]
  - Drug ineffective [Unknown]

NARRATIVE: CASE EVENT DATE: 2012
